FAERS Safety Report 8510243-3 (Version None)
Quarter: 2012Q3

REPORT INFORMATION
  Report Type: 
  Country: None (occurrence: None)
  Receive Date: 20120713
  Receipt Date: 20120702
  Transmission Date: 20120928
  Serious: Yes (Other)
  Sender: FDA-Public Use
  Company Number: US-FRI-1000036836

PATIENT
  Age: 57 Year
  Sex: Female

DRUGS (2)
  1. VIIBRYD [Suspect]
     Dosage: 20 MG
     Route: 048
     Dates: start: 20120101, end: 20120101
  2. VIIBRYD [Suspect]
     Indication: DEPRESSION
     Dosage: 10 MG
     Route: 048
     Dates: start: 20120501, end: 20120101

REACTIONS (3)
  - LOSS OF CONSCIOUSNESS [None]
  - DIZZINESS [None]
  - DRY MOUTH [None]
